FAERS Safety Report 19205219 (Version 3)
Quarter: 2021Q3

REPORT INFORMATION
  Report Type: Spontaneous
  Country: GB (occurrence: GB)
  Receive Date: 20210503
  Receipt Date: 20210912
  Transmission Date: 20211014
  Serious: Yes (Other)
  Sender: FDA-Public Use
  Company Number: GB-AUROBINDO-AUR-APL-2021-017180

PATIENT
  Age: 47 Year
  Sex: Male
  Weight: 95.25 kg

DRUGS (3)
  1. CLARITHROMYCIN. [Suspect]
     Active Substance: CLARITHROMYCIN
     Dosage: 1000 MILLIGRAM (1000 MG, QD (500MG X2 DAILY))
     Route: 030
     Dates: start: 20210305, end: 20210312
  2. CLARITHROMYCIN. [Suspect]
     Active Substance: CLARITHROMYCIN
     Dosage: 1000 MILLIGRAM, ONCE A DAY (500 MG, BID)
     Route: 048
     Dates: start: 20210312
  3. CLARITHROMYCIN. [Suspect]
     Active Substance: CLARITHROMYCIN
     Indication: LOWER RESPIRATORY TRACT INFECTION
     Dosage: 500 MILLIGRAM, TWO TIMES A DAY(500 MILLIGRAM, BID, 500MG X2 DAILY)
     Route: 048
     Dates: start: 20210305, end: 20210312

REACTIONS (7)
  - Myalgia [Recovering/Resolving]
  - Anxiety [Recovering/Resolving]
  - Confusional state [Recovering/Resolving]
  - Fatigue [Recovering/Resolving]
  - Disorganised speech [Recovering/Resolving]
  - Dysgeusia [Recovering/Resolving]
  - Nightmare [Recovering/Resolving]

NARRATIVE: CASE EVENT DATE: 20210305
